FAERS Safety Report 19285044 (Version 2)
Quarter: 2021Q2

REPORT INFORMATION
  Report Type: Spontaneous
  Country: US (occurrence: US)
  Receive Date: 20210521
  Receipt Date: 20210526
  Transmission Date: 20210717
  Serious: Yes (Death, Other)
  Sender: FDA-Public Use
  Company Number: US-BIOVITRUM-2021US4659

PATIENT
  Sex: Female

DRUGS (6)
  1. SYNAGIS [Suspect]
     Active Substance: PALIVIZUMAB
     Indication: HYPERTROPHIC CARDIOMYOPATHY
  2. SYNAGIS [Suspect]
     Active Substance: PALIVIZUMAB
     Indication: HYPOPLASTIC LEFT HEART SYNDROME
  3. SYNAGIS [Suspect]
     Active Substance: PALIVIZUMAB
     Indication: MULTIPLE CONGENITAL ABNORMALITIES
  4. SYNAGIS [Suspect]
     Active Substance: PALIVIZUMAB
     Indication: SPINE MALFORMATION
  5. SYNAGIS [Suspect]
     Active Substance: PALIVIZUMAB
     Indication: DEVELOPMENTAL HIP DYSPLASIA
  6. SYNAGIS [Suspect]
     Active Substance: PALIVIZUMAB
     Indication: PULMONARY ARTERIAL HYPERTENSION
     Dosage: (100MG/ML)
     Route: 030
     Dates: start: 202103

REACTIONS (1)
  - Death [Fatal]
